FAERS Safety Report 18571912 (Version 4)
Quarter: 2021Q1

REPORT INFORMATION
  Report Type: Spontaneous
  Country: US (occurrence: US)
  Receive Date: 20201202
  Receipt Date: 20210324
  Transmission Date: 20210419
  Serious: No
  Sender: FDA-Public Use
  Company Number: NVSC2020US319914

PATIENT
  Age: 31 Year
  Sex: Female

DRUGS (1)
  1. KESIMPTA [Suspect]
     Active Substance: OFATUMUMAB
     Indication: MULTIPLE SCLEROSIS RELAPSE
     Dosage: 20 MG
     Route: 058
     Dates: start: 20201121

REACTIONS (9)
  - Chest pain [Recovering/Resolving]
  - Injection site discomfort [Recovering/Resolving]
  - Injection site bruising [Recovering/Resolving]
  - Dyspnoea [Recovering/Resolving]
  - Chest discomfort [Recovering/Resolving]
  - Chills [Recovering/Resolving]
  - Injection site extravasation [Recovering/Resolving]
  - Gastroenteritis viral [Recovered/Resolved]
  - Tremor [Recovering/Resolving]

NARRATIVE: CASE EVENT DATE: 20201121
